FAERS Safety Report 4446228-6 (Version None)
Quarter: 2004Q3

REPORT INFORMATION
  Report Type: 
  Country: None (occurrence: None)
  Receive Date: 20040902
  Receipt Date: 20040714
  Transmission Date: 20050211
  Serious: Yes (Other)
  Sender: FDA-Public Use
  Company Number: 2004230148ES

PATIENT
  Age: 60 Year
  Sex: Female

DRUGS (2)
  1. CABERGOLINE [Suspect]
     Indication: PARKINSON'S DISEASE
     Dosage: 6 MG/DAY, ORAL
     Route: 048
  2. LEVODOPA [Concomitant]

REACTIONS (3)
  - CONDITION AGGRAVATED [None]
  - FACE OEDEMA [None]
  - PARKINSON'S DISEASE [None]
